FAERS Safety Report 9767387 (Version 2)
Quarter: 2013Q4

REPORT INFORMATION
  Report Type: Report from Study
  Country: CA (occurrence: CA)
  Receive Date: 20131217
  Receipt Date: 20131218
  Transmission Date: 20140711
  Serious: Yes (Other)
  Sender: FDA-Public Use
  Company Number: PHHY2013CA146322

PATIENT
  Age: 38 Year
  Sex: Female

DRUGS (9)
  1. BACLOFEN [Suspect]
     Indication: RELAPSING-REMITTING MULTIPLE SCLEROSIS
     Dosage: 10 MG, TID
  2. RITALIN [Suspect]
     Dosage: 1.5 DF, BID
  3. SENOKOT                                 /USA/ [Concomitant]
     Dosage: 1 TO 3 DF, TID
     Route: 048
  4. EURO-SENNA [Concomitant]
     Dosage: 1 DF, TID (AS NEEDED)
  5. NOVO-GESIC [Concomitant]
     Dosage: 1-2 TABS Q 4-6 HOURS PRN
  6. PMS-DOCUSATE SODIUM [Concomitant]
     Dosage: 1 DF, (1 IN MORNING AND 1 IN EVENING)
  7. APO-METHYLPHENIDATE [Concomitant]
     Dosage: 1 DF, BID
  8. APO-OXAZEPAM [Concomitant]
     Dosage: 1 DF, QHS AS NEEDED
  9. GILENYA [Concomitant]
     Indication: RELAPSING-REMITTING MULTIPLE SCLEROSIS
     Dosage: 0.5 MG, DAILY
     Dates: start: 20121213

REACTIONS (1)
  - Multiple sclerosis relapse [Recovered/Resolved]
